FAERS Safety Report 10640468 (Version 1)
Quarter: 2014Q4

REPORT INFORMATION
  Report Type: Spontaneous
  Country: US (occurrence: None)
  Receive Date: 20141205
  Receipt Date: 20141205
  Transmission Date: 20150529
  Serious: Yes (Other)
  Sender: FDA-Public Use
  Company Number: None

PATIENT
  Age: 65 Year
  Sex: Female

DRUGS (1)
  1. ENBREL [Suspect]
     Active Substance: ETANERCEPT
     Indication: RHEUMATOID ARTHRITIS
     Route: 058
     Dates: start: 20141112, end: 20141126

REACTIONS (4)
  - Injection site mass [None]
  - Chest pain [None]
  - Injection site erythema [None]
  - Injection site rash [None]

NARRATIVE: CASE EVENT DATE: 20141126
